FAERS Safety Report 13591509 (Version 1)
Quarter: 2017Q2

REPORT INFORMATION
  Report Type: Spontaneous
  Country: US (occurrence: US)
  Receive Date: 20170529
  Receipt Date: 20170529
  Transmission Date: 20170830
  Serious: No
  Sender: FDA-Public Use
  Company Number: US-PFIZER INC-2017232581

PATIENT
  Age: 71 Year
  Sex: Female

DRUGS (1)
  1. XELJANZ [Suspect]
     Active Substance: TOFACITINIB CITRATE
     Indication: RHEUMATOID ARTHRITIS
     Dosage: UNK
     Dates: end: 20170520

REACTIONS (7)
  - Malaise [Unknown]
  - Ocular discomfort [Unknown]
  - Asthenia [Unknown]
  - Head discomfort [Unknown]
  - Swelling [Unknown]
  - Diarrhoea [Unknown]
  - Pharyngeal oedema [Unknown]
